FAERS Safety Report 18564969 (Version 1)
Quarter: 2020Q4

REPORT INFORMATION
  Report Type: Report from Study
  Country: ES (occurrence: ES)
  Receive Date: 20201201
  Receipt Date: 20201201
  Transmission Date: 20210114
  Serious: Yes (Hospitalization)
  Sender: FDA-Public Use
  Company Number: ES-INCYTE CORPORATION-2018IN002274

PATIENT

DRUGS (38)
  1. JAKAVI [Suspect]
     Active Substance: RUXOLITINIB
     Indication: POLYCYTHAEMIA VERA
     Dosage: 20, OT
     Route: 048
     Dates: start: 20180215, end: 20180226
  2. MIDAZOLAM. [Concomitant]
     Active Substance: MIDAZOLAM
     Indication: SEDATION
     Dosage: 1 DF, UNK
     Route: 065
     Dates: start: 20180308, end: 20180308
  3. AMOXICILLIN + CLAVULANIC ACID [Concomitant]
     Active Substance: AMOXICILLIN\CLAVULANIC ACID
     Indication: URINARY TRACT INFECTION
     Dosage: 875 OT, UNK
     Route: 065
     Dates: start: 20180325, end: 20180328
  4. DOXAZOSINE [DOXAZOSIN] [Concomitant]
     Active Substance: DOXAZOSIN MESYLATE
     Indication: HYPERTENSION
     Dosage: 4 OT, UNK
     Route: 065
     Dates: start: 20180323, end: 20180427
  5. PANTOPRAZOLE [PANTOPRAZOLE SODIUM SESQUIHYDRATE] [Concomitant]
     Active Substance: PANTOPRAZOLE SODIUM
     Indication: PROPHYLAXIS
     Dosage: 40 OT, UNK
     Route: 065
     Dates: start: 20170711
  6. DIAZEPAM. [Concomitant]
     Active Substance: DIAZEPAM
     Indication: DEPRESSION
  7. MORFINE [Concomitant]
     Active Substance: MORPHINE
     Indication: PAIN
     Dosage: 5 OT, UNK
     Route: 065
     Dates: start: 20180303, end: 20180303
  8. VENLAFAXINE [Concomitant]
     Active Substance: VENLAFAXINE HYDROCHLORIDE
     Indication: DEPRESSION
     Dosage: 75 OT, UNK
     Route: 065
     Dates: start: 20170811
  9. LORAZEPAM. [Concomitant]
     Active Substance: LORAZEPAM
     Indication: DEPRESSION
  10. JAKAVI [Suspect]
     Active Substance: RUXOLITINIB
     Dosage: 20, OT
     Route: 048
     Dates: start: 20180309, end: 20180401
  11. TRAMADOL. [Concomitant]
     Active Substance: TRAMADOL
     Indication: PAIN
     Dosage: 50 OT, UNK
     Route: 065
     Dates: start: 20180221, end: 20180307
  12. FOSFOMYCIN [Concomitant]
     Active Substance: FOSFOMYCIN
     Dosage: 3 OT, UNK
     Route: 065
     Dates: start: 20180410, end: 20180410
  13. HALOPERIDOL. [Concomitant]
     Active Substance: HALOPERIDOL
     Indication: ANXIETY
     Dosage: 5 OT, UNK
     Route: 065
     Dates: start: 20180325, end: 20180326
  14. JAKAVI [Suspect]
     Active Substance: RUXOLITINIB
     Dosage: 40, OT
     Route: 048
     Dates: start: 20180307, end: 20180308
  15. JAKAVI [Suspect]
     Active Substance: RUXOLITINIB
     Dosage: 30, OT
     Route: 048
     Dates: start: 20180402, end: 20180501
  16. ENOXAPARIN [Concomitant]
     Active Substance: ENOXAPARIN
     Indication: THROMBOSIS PROPHYLAXIS
     Dosage: 40 OT, UNK
     Route: 065
     Dates: start: 20180225, end: 20180307
  17. ACETYLSALICYLIC ACID [Concomitant]
     Active Substance: ASPIRIN
     Indication: THROMBOSIS PROPHYLAXIS
     Dosage: 100 OT, UNK
     Route: 065
  18. METOCLOPRAMIDE. [Concomitant]
     Active Substance: METOCLOPRAMIDE
     Indication: PROPHYLAXIS OF NAUSEA AND VOMITING
     Dosage: 10 DF, UNK
     Route: 065
     Dates: start: 20180303, end: 20180303
  19. PETHIDINE [Concomitant]
     Active Substance: MEPERIDINE
     Indication: PAIN
     Dosage: 50 DF, UNK
     Route: 065
     Dates: start: 20180305, end: 201803
  20. MIRTAZAPINE. [Concomitant]
     Active Substance: MIRTAZAPINE
     Indication: DEPRESSION
     Dosage: 15 OT, UNK
     Route: 065
     Dates: start: 20180324, end: 20180426
  21. ALLOPURINOL. [Concomitant]
     Active Substance: ALLOPURINOL
     Indication: RENAL FAILURE
     Dosage: 100 OT, UNK
     Route: 065
     Dates: start: 20180423, end: 20180426
  22. PREGABALINE [Concomitant]
     Active Substance: PREGABALIN
     Indication: NEURALGIA
     Dosage: 25 OT, UNK
     Route: 065
     Dates: start: 20180329, end: 20180427
  23. TRAMADOL. [Concomitant]
     Active Substance: TRAMADOL
     Dosage: 50 UNK, UNK
     Route: 065
     Dates: start: 20180323, end: 20180329
  24. CASPOFUNGINE [Concomitant]
     Active Substance: CASPOFUNGIN
     Dosage: 50 OT, UNK
     Route: 065
     Dates: start: 20180403, end: 20180418
  25. DIAZEPAM. [Concomitant]
     Active Substance: DIAZEPAM
     Indication: ANXIETY
     Dosage: 10 OT, UNK
     Route: 065
     Dates: start: 20080719
  26. JAKAVI [Suspect]
     Active Substance: RUXOLITINIB
     Dosage: 30, OT
     Route: 048
     Dates: start: 20180227, end: 20180306
  27. PARACETAMOL [Concomitant]
     Active Substance: ACETAMINOPHEN
     Indication: PROPHYLAXIS
     Dosage: 1 DF, UNK
     Route: 065
     Dates: start: 20180220, end: 20180308
  28. FUROSEMIDE. [Concomitant]
     Active Substance: FUROSEMIDE
     Indication: FLUID OVERLOAD
     Dosage: 20 OT, UNK
     Route: 065
     Dates: start: 20180224, end: 20180426
  29. BISOPROLOL [Concomitant]
     Active Substance: BISOPROLOL
     Indication: HYPERTENSION
     Dosage: 2.5 OT, UNK
     Route: 065
     Dates: start: 20170711
  30. AMLODIPINE [Concomitant]
     Active Substance: AMLODIPINE BESYLATE
     Indication: HYPERTENSION
     Dosage: 10 OT, UNK
     Route: 065
     Dates: start: 20180323, end: 20180427
  31. FOSFOMYCIN [Concomitant]
     Active Substance: FOSFOMYCIN
     Indication: URINARY TRACT INFECTION
     Dosage: 3 OT, UNK
     Route: 065
     Dates: start: 20180401, end: 20180401
  32. FOSFOMYCIN [Concomitant]
     Active Substance: FOSFOMYCIN
     Dosage: 3 OT, UNK
     Route: 065
     Dates: start: 20180403, end: 20180426
  33. FENTANYL. [Concomitant]
     Active Substance: FENTANYL
     Indication: PAIN PROPHYLAXIS
     Dosage: 100 OT, UNK
     Route: 065
     Dates: start: 20170711
  34. JAKAVI [Suspect]
     Active Substance: RUXOLITINIB
     Dosage: 40, OT
     Route: 048
     Dates: start: 20180502
  35. NICOTINE. [Concomitant]
     Active Substance: NICOTINE
     Indication: PRODUCT USED FOR UNKNOWN INDICATION
     Dosage: 21 OT, UNK
     Route: 065
     Dates: start: 20180324, end: 20180426
  36. CASPOFUNGINE [Concomitant]
     Active Substance: CASPOFUNGIN
     Indication: URINARY TRACT INFECTION
     Dosage: 70 UNK, UNK
     Route: 065
     Dates: start: 20180402, end: 20180402
  37. SIMVASTATINE [Concomitant]
     Active Substance: SIMVASTATIN
     Indication: BLOOD CHOLESTEROL
     Dosage: 10 OT, UNK
     Route: 065
     Dates: start: 20170710
  38. LORAZEPAM. [Concomitant]
     Active Substance: LORAZEPAM
     Indication: ANXIETY
     Dosage: 1 OT, UNK
     Route: 065
     Dates: start: 20170710

REACTIONS (21)
  - Basophil percentage increased [Unknown]
  - Hyperhidrosis [Not Recovered/Not Resolved]
  - Platelet count increased [Unknown]
  - Pneumonia [Recovered/Resolved]
  - Cough [Not Recovered/Not Resolved]
  - White blood cell count increased [Unknown]
  - Neutrophil count increased [Unknown]
  - Platelet distribution width increased [Unknown]
  - Red cell distribution width increased [Unknown]
  - Blood urea increased [Unknown]
  - Eosinophil percentage increased [Unknown]
  - Monocyte percentage increased [Unknown]
  - Pyrexia [Not Recovered/Not Resolved]
  - Anaemia [Not Recovered/Not Resolved]
  - Asthenia [Not Recovered/Not Resolved]
  - Lung infiltration [Unknown]
  - Haematocrit increased [Unknown]
  - Abdominal discomfort [Not Recovered/Not Resolved]
  - Mean cell volume increased [Unknown]
  - Constipation [Recovered/Resolved]
  - Lymphocyte count decreased [Unknown]

NARRATIVE: CASE EVENT DATE: 20180220
